FAERS Safety Report 7686057-3 (Version None)
Quarter: 2011Q3

REPORT INFORMATION
  Report Type: 
  Country: None (occurrence: None)
  Receive Date: 20110816
  Receipt Date: 20110811
  Transmission Date: 20111222
  Serious: No
  Sender: FDA-Public Use
  Company Number: US-PFIZER INC-2011185114

PATIENT
  Sex: Female

DRUGS (3)
  1. PRISTIQ [Suspect]
     Dosage: 1/2 TABLET DAILY
  2. PRISTIQ [Suspect]
     Dosage: UNK
  3. PRISTIQ [Suspect]
     Dosage: 3/4 TABLET

REACTIONS (1)
  - DEPRESSION [None]
